FAERS Safety Report 14345703 (Version 2)
Quarter: 2018Q1

REPORT INFORMATION
  Report Type: Spontaneous
  Country: US (occurrence: US)
  Receive Date: 20180103
  Receipt Date: 20180108
  Transmission Date: 20180509
  Serious: No
  Sender: FDA-Public Use
  Company Number: US-B.I. PHARMACEUTICALS,INC./RIDGEFIELD-2018-BI-000198

PATIENT
  Age: 79 Year
  Sex: Female

DRUGS (3)
  1. FLUTAMIDE. [Concomitant]
     Active Substance: FLUTAMIDE
     Indication: RHEUMATOID ARTHRITIS
     Dosage: ONE CAPSULE DAILY;  FORM STRENGTH: 20 MG; FORMULATION: CAPSULE
     Route: 048
  2. SPIRIVA [Suspect]
     Active Substance: TIOTROPIUM BROMIDE MONOHYDRATE
     Indication: ASTHMA
     Dosage: FORM STRENGTH: 1.25 MCG; ACTION(S) TAKEN WITH PRODUCT: DOSE NOT CHANGED
     Route: 065
     Dates: start: 201701
  3. FOSAMAX [Concomitant]
     Active Substance: ALENDRONATE SODIUM
     Indication: SUPPLEMENTATION THERAPY
     Route: 065

REACTIONS (1)
  - Thyroid mass [Unknown]

NARRATIVE: CASE EVENT DATE: 201707
